FAERS Safety Report 8905818 (Version 1)
Quarter: 2012Q4

REPORT INFORMATION
  Report Type: 
  Country: GR (occurrence: GR)
  Receive Date: 20121113
  Receipt Date: 20121113
  Transmission Date: 20130627
  Serious: Yes (Death)
  Sender: FDA-Public Use
  Company Number: GR-GLAXOSMITHKLINE-B0844029A

PATIENT
  Sex: Female

DRUGS (1)
  1. VOTRIENT [Suspect]
     Indication: PHYLLODES TUMOUR
     Route: 065
     Dates: start: 201210

REACTIONS (2)
  - Phyllodes tumour [Fatal]
  - Disease progression [Fatal]
